FAERS Safety Report 5803208-3 (Version None)
Quarter: 2008Q3

REPORT INFORMATION
  Report Type: 
  Country: None (occurrence: None)
  Receive Date: 20080708
  Receipt Date: 20080625
  Transmission Date: 20090109
  Serious: Yes (Life-Threatening, Hospitalization)
  Sender: FDA-Public Use
  Company Number: CH-TEVA-162484ISR

PATIENT
  Sex: Male

DRUGS (13)
  1. CISPLATIN [Suspect]
     Indication: SMALL CELL LUNG CANCER STAGE UNSPECIFIED
     Route: 042
     Dates: start: 20070508
  2. IRINOTECAN [Suspect]
     Indication: SMALL CELL LUNG CANCER STAGE UNSPECIFIED
     Route: 042
     Dates: start: 20070508
  3. FOSICOMP (FOSINOPRIL SODIUM, HYDROCHLOROTHIAZIDE) [Concomitant]
     Route: 048
     Dates: start: 20040101
  4. DEXAMETHASONE [Concomitant]
     Route: 048
     Dates: start: 20070503
  5. ESOMEPRAZOLE MAGNESIUM [Concomitant]
     Route: 048
     Dates: start: 20070514, end: 20070514
  6. ESOMEPRAZOLE MAGNESIUM [Concomitant]
     Route: 042
     Dates: start: 20070515, end: 20070517
  7. ESOMEPRAZOLE MAGNESIUM [Concomitant]
     Route: 048
     Dates: start: 20070518
  8. HALOPERIDOL [Concomitant]
     Route: 048
     Dates: start: 20070513, end: 20070514
  9. HALOPERIDOL [Concomitant]
     Route: 042
     Dates: start: 20070514, end: 20070514
  10. HALOPERIDOL [Concomitant]
     Route: 048
     Dates: start: 20070518
  11. AMIODARONE HCL [Concomitant]
     Route: 042
     Dates: start: 20070515, end: 20070517
  12. AMIODARONE HCL [Concomitant]
     Route: 048
     Dates: start: 20070517
  13. ALBUTEROL [Concomitant]
     Route: 055

REACTIONS (2)
  - DISSEMINATED INTRAVASCULAR COAGULATION [None]
  - SEPSIS [None]
